FAERS Safety Report 24361446 (Version 1)
Quarter: 2024Q3

REPORT INFORMATION
  Report Type: Spontaneous
  Country: US (occurrence: US)
  Receive Date: 20240925
  Receipt Date: 20240925
  Transmission Date: 20241017
  Serious: No
  Sender: CELLTRION
  Company Number: US-CELLTRION INC.-2023US020687

PATIENT

DRUGS (3)
  1. INFLIXIMAB [Suspect]
     Active Substance: INFLIXIMAB
     Indication: Pyoderma gangrenosum
     Dosage: INITIATION OF CYCLOSPORINE AND INFLIXIMAB RESULTED IN RAPID CLINICAL IMPROVEMENT IN BOTH PULMONARY A
  2. CYCLOSPORINE [Suspect]
     Active Substance: CYCLOSPORINE
     Indication: Pyoderma gangrenosum
     Dosage: INITIATION OF CYCLOSPORINE AND INFLIXIMAB RESULTED IN RAPID CLINICAL IMPROVEMENT IN BOTH PULMONARY A
  3. IMMUNE GLOBULIN NOS [Suspect]
     Active Substance: IMMUNE GLOBULIN NOS
     Indication: Pyoderma gangrenosum
     Dosage: HIS DISEASE WAS REFRACTORY TO INTRAVENOUS CORTICOSTEROID THERAPY AND INTRAVENOUS IMMUNOGLOBULIN THER
     Route: 042

REACTIONS (1)
  - Drug effective for unapproved indication [Unknown]
